FAERS Safety Report 5124994-4 (Version None)
Quarter: 2006Q4

REPORT INFORMATION
  Report Type: 
  Country: None (occurrence: None)
  Receive Date: 20061011
  Receipt Date: 20060809
  Transmission Date: 20070319
  Serious: Yes (Hospitalization)
  Sender: FDA-Public Use
  Company Number: J200602858

PATIENT
  Age: 9 Year
  Sex: Female

DRUGS (3)
  1. SAWACILLIN [Suspect]
     Dosage: 250MG THREE TIMES PER DAY
     Route: 048
     Dates: start: 20060624, end: 20060629
  2. BIOFERMIN R [Concomitant]
     Route: 048
     Dates: start: 20060624, end: 20060629
  3. EMPYNASE P [Concomitant]
     Route: 048
     Dates: start: 20060624, end: 20060629

REACTIONS (4)
  - ABDOMINAL PAIN [None]
  - DIARRHOEA [None]
  - ENTEROCOLITIS HAEMORRHAGIC [None]
  - HAEMATOCHEZIA [None]
